FAERS Safety Report 4566336-9 (Version None)
Quarter: 2005Q1

REPORT INFORMATION
  Report Type: 
  Country: None (occurrence: None)
  Receive Date: 20050126
  Receipt Date: 20050126
  Transmission Date: 20050727
  Serious: Yes (Other)
  Sender: FDA-Public Use
  Company Number: None

PATIENT
  Age: 57 Year
  Sex: Male
  Weight: 111.6 kg

DRUGS (8)
  1. PANTOPRAZOLE [Suspect]
  2. MELOXICAM [Concomitant]
  3. FOSINOPRIL [Concomitant]
  4. LORATADINE [Concomitant]
  5. VENLAFAXINE HCL [Concomitant]
  6. GABAPENTIN [Concomitant]
  7. ZOLPIDEM TARTRATE [Concomitant]
  8. SIMVASTATIN [Concomitant]

REACTIONS (1)
  - RASH [None]
